FAERS Safety Report 6960583-4 (Version None)
Quarter: 2010Q3

REPORT INFORMATION
  Report Type: 
  Country: None (occurrence: None)
  Receive Date: 20100901
  Receipt Date: 20100824
  Transmission Date: 20110219
  Serious: Yes (Other)
  Sender: FDA-Public Use
  Company Number: IL-PFIZER INC-2010107522

PATIENT
  Sex: Male

DRUGS (1)
  1. CAMPTOSAR [Suspect]

REACTIONS (1)
  - DYSPHEMIA [None]
